FAERS Safety Report 6447046-X (Version None)
Quarter: 2009Q4

REPORT INFORMATION
  Report Type: 
  Country: None (occurrence: None)
  Receive Date: 20091119
  Receipt Date: 20091113
  Transmission Date: 20100525
  Serious: Yes (Hospitalization)
  Sender: FDA-Public Use
  Company Number: Z0002322A

PATIENT
  Sex: Male
  Weight: 82 kg

DRUGS (2)
  1. OFATUMUMAB [Suspect]
     Route: 042
     Dates: start: 20091111
  2. CHLORAMBUCIL [Suspect]
     Route: 048
     Dates: start: 20091111

REACTIONS (1)
  - TUMOUR LYSIS SYNDROME [None]
